FAERS Safety Report 6283812-1 (Version None)
Quarter: 2009Q3

REPORT INFORMATION
  Report Type: 
  Country: None (occurrence: None)
  Receive Date: 20090724
  Receipt Date: 20090714
  Transmission Date: 20100115
  Serious: Yes (Other)
  Sender: FDA-Public Use
  Company Number: US-PFIZER INC-2009242135

PATIENT
  Sex: Female
  Weight: 90.703 kg

DRUGS (6)
  1. CHANTIX [Suspect]
     Indication: SMOKING CESSATION THERAPY
     Dosage: 1 MG, 2X/DAY
     Route: 048
     Dates: start: 20090601, end: 20090710
  2. PIROXICAM [Concomitant]
     Dosage: 2 MG, 1X/DAY
  3. PREMARIN [Concomitant]
     Dosage: 0.3 MG, 1X/DAY
  4. CRESTOR [Concomitant]
     Dosage: 10 MG, ALTERNATE DAY
  5. MEDROXYPROGESTERONE ACETATE [Concomitant]
     Dosage: 2.5 MG, 1X/DAY
  6. HYDROCODONE [Concomitant]
     Dosage: UNK

REACTIONS (4)
  - AGGRESSION [None]
  - ANGER [None]
  - DEPRESSION [None]
  - HOMICIDAL IDEATION [None]
